FAERS Safety Report 6550468-X (Version None)
Quarter: 2010Q1

REPORT INFORMATION
  Report Type: 
  Country: None (occurrence: None)
  Receive Date: 20100125
  Receipt Date: 20100120
  Transmission Date: 20100710
  Serious: Yes (Hospitalization)
  Sender: FDA-Public Use
  Company Number: A0839540A

PATIENT
  Sex: Female

DRUGS (4)
  1. AVANDIA [Suspect]
     Route: 048
     Dates: start: 20030401, end: 20030521
  2. ESTRADIOL [Concomitant]
  3. HYDROCHLOROTHIAZIDE [Concomitant]
  4. IBUPROFEN [Concomitant]

REACTIONS (8)
  - ABNORMAL SENSATION IN EYE [None]
  - DECREASED APPETITE [None]
  - DROOLING [None]
  - DRUG HYPERSENSITIVITY [None]
  - MYALGIA [None]
  - NAUSEA [None]
  - SYNCOPE [None]
  - WEIGHT DECREASED [None]
